FAERS Safety Report 5336520-5 (Version None)
Quarter: 2007Q2

REPORT INFORMATION
  Report Type: 
  Country: None (occurrence: None)
  Receive Date: 20070529
  Receipt Date: 20070516
  Transmission Date: 20071010
  Serious: Yes (Other)
  Sender: FDA-Public Use
  Company Number: GB-SOLVAY-00207032403

PATIENT
  Age: 52 Year
  Sex: Male
  Weight: 128 kg

DRUGS (3)
  1. BENDROFLUAZIDE [Concomitant]
     Indication: ILL-DEFINED DISORDER
     Dosage: DAILY DOSE:  UNKNOWN
     Route: 048
  2. PERINDOPRIL ERBUMINE [Suspect]
     Indication: HYPERTENSION
     Dosage: DAILY DOSE: 8 MILLIGRAM(S)
     Route: 048
     Dates: start: 20060418
  3. XENICAL [Interacting]
     Indication: OBESITY
     Dosage: DAILY DOSE: 360 MILLIGRAM(S)
     Route: 048
     Dates: start: 20060809, end: 20061026

REACTIONS (2)
  - BLOOD PRESSURE INCREASED [None]
  - DRUG INTERACTION [None]
